FAERS Safety Report 4856013-9 (Version None)
Quarter: 2005Q4

REPORT INFORMATION
  Report Type: 
  Country: None (occurrence: None)
  Receive Date: 20051216
  Receipt Date: 20051206
  Transmission Date: 20060501
  Serious: Yes (Hospitalization)
  Sender: FDA-Public Use
  Company Number: FR-ABBOTT-05P-056-0318787-00

PATIENT
  Age: 67 Year
  Sex: Female

DRUGS (7)
  1. DEPAKENE [Suspect]
     Indication: EPILEPSY
     Route: 048
     Dates: start: 19991223
  2. LEVOTHYROXINE SODIUM [Suspect]
     Indication: HYPOTHYROIDISM
     Route: 048
     Dates: start: 20041201
  3. PHENYTOIN [Suspect]
     Indication: EPILEPSY
     Route: 048
     Dates: start: 20030602
  4. PHENYTOIN [Suspect]
  5. LAMOTRIGINE [Suspect]
     Indication: EPILEPSY
     Route: 048
     Dates: start: 20020206
  6. CLOBAZAM [Concomitant]
     Indication: DRUG USE FOR UNKNOWN INDICATION
     Route: 048
  7. CARBAMAZEPINE [Concomitant]
     Indication: DRUG USE FOR UNKNOWN INDICATION

REACTIONS (9)
  - ALCOHOLISM [None]
  - BALANCE DISORDER [None]
  - CHOLESTASIS [None]
  - CONVULSION [None]
  - GINGIVAL HYPERTROPHY [None]
  - HIRSUTISM [None]
  - HYPOCHLORAEMIA [None]
  - HYPONATRAEMIA [None]
  - PSYCHOMOTOR RETARDATION [None]
